FAERS Safety Report 20182364 (Version 1)
Quarter: 2021Q4

REPORT INFORMATION
  Report Type: Spontaneous
  Country: US (occurrence: US)
  Receive Date: 20211214
  Receipt Date: 20211214
  Transmission Date: 20220303
  Serious: Yes (Hospitalization)
  Sender: FDA-Public Use
  Company Number: US-MYLANLABS-2021M1092587

PATIENT
  Age: 5 Year
  Sex: Female

DRUGS (2)
  1. AMIODARONE [Suspect]
     Active Substance: AMIODARONE
     Indication: Ventricular tachycardia
     Dosage: THREE AMIODARONE BOLUSES (5 MG/KG) FOLLOWED BY AMIODARONE DRIP
     Route: 065
  2. AMIODARONE [Suspect]
     Active Substance: AMIODARONE
     Dosage: AMIODARONE DRIP
     Route: 065

REACTIONS (2)
  - Atrioventricular block first degree [Unknown]
  - Off label use [Unknown]
